FAERS Safety Report 14845150 (Version 1)
Quarter: 2018Q2

REPORT INFORMATION
  Report Type: Spontaneous
  Country: FR (occurrence: FR)
  Receive Date: 20180504
  Receipt Date: 20180504
  Transmission Date: 20180711
  Serious: Yes (Life-Threatening)
  Sender: FDA-Public Use
  Company Number: FR-ROCHE-2118765

PATIENT
  Age: 56 Year
  Sex: Male
  Weight: 78 kg

DRUGS (7)
  1. ALKERAN [Suspect]
     Active Substance: MELPHALAN
     Indication: DIFFUSE LARGE B-CELL LYMPHOMA STAGE IV
     Route: 041
     Dates: start: 20130709, end: 20130709
  2. ZEVALIN [Suspect]
     Active Substance: IBRITUMOMAB TIUXETAN
     Indication: DIFFUSE LARGE B-CELL LYMPHOMA STAGE IV
     Route: 041
     Dates: start: 20130626, end: 20130626
  3. OXALIPLATINE [Suspect]
     Active Substance: OXALIPLATIN
     Indication: DIFFUSE LARGE B-CELL LYMPHOMA STAGE IV
     Dosage: MOST RECENT DOSE ON 05/JUN/2013
     Route: 041
     Dates: start: 20130405
  4. BICNU [Suspect]
     Active Substance: CARMUSTINE
     Indication: DIFFUSE LARGE B-CELL LYMPHOMA STAGE IV
     Route: 041
     Dates: start: 20130704, end: 20130704
  5. CYTARABINE. [Suspect]
     Active Substance: CYTARABINE
     Indication: DIFFUSE LARGE B-CELL LYMPHOMA STAGE IV
     Dosage: MOST RECENT DOSE ON 08/JUL/2013
     Route: 041
     Dates: start: 20130705
  6. ETOPOSIDE. [Suspect]
     Active Substance: ETOPOSIDE
     Indication: DIFFUSE LARGE B-CELL LYMPHOMA STAGE IV
     Dosage: MOST RECENT DOSE ON 08/JUL/2013
     Route: 041
     Dates: start: 20130705
  7. MABTHERA [Suspect]
     Active Substance: RITUXIMAB
     Indication: DIFFUSE LARGE B-CELL LYMPHOMA STAGE IV
     Route: 041
     Dates: start: 20130626, end: 20130626

REACTIONS (1)
  - Venoocclusive liver disease [Recovered/Resolved]

NARRATIVE: CASE EVENT DATE: 20130718
